FAERS Safety Report 9874480 (Version 2)
Quarter: 2014Q1

REPORT INFORMATION
  Report Type: Spontaneous
  Country: GB (occurrence: GB)
  Receive Date: 20140206
  Receipt Date: 20140206
  Transmission Date: 20141002
  Serious: Yes (Other)
  Sender: FDA-Public Use
  Company Number: GB-009507513-1302GBR005100

PATIENT
  Sex: Female

DRUGS (1)
  1. NEXPLANON [Suspect]
     Dosage: 68 MG, UNK
     Route: 059
     Dates: start: 20121019

REACTIONS (7)
  - Caesarean section [Unknown]
  - Wound infection [Unknown]
  - Medical device complication [Recovered/Resolved]
  - Maternal exposure before pregnancy [Recovered/Resolved]
  - Device expulsion [Recovered/Resolved]
  - Wound abscess [Unknown]
  - Drug dose omission [Unknown]
